FAERS Safety Report 8443381-4 (Version None)
Quarter: 2012Q2

REPORT INFORMATION
  Report Type: 
  Country: None (occurrence: None)
  Receive Date: 20120618
  Receipt Date: 20120611
  Transmission Date: 20120825
  Serious: Yes (Hospitalization)
  Sender: FDA-Public Use
  Company Number: US-BIOGENIDEC-2012BI013763

PATIENT
  Age: 52 Year
  Sex: Female

DRUGS (1)
  1. AVONEX [Suspect]
     Indication: MULTIPLE SCLEROSIS
     Route: 030
     Dates: start: 20111006

REACTIONS (7)
  - INFLUENZA LIKE ILLNESS [None]
  - BRAIN OEDEMA [None]
  - CRANIOCEREBRAL INJURY [None]
  - SUBDURAL HAEMORRHAGE [None]
  - MEMORY IMPAIRMENT [None]
  - FALL [None]
  - SKULL FRACTURE [None]
